FAERS Safety Report 9678072 (Version 2)
Quarter: 2013Q4

REPORT INFORMATION
  Report Type: Spontaneous
  Country: US (occurrence: US)
  Receive Date: 20131108
  Receipt Date: 20131121
  Transmission Date: 20140711
  Serious: Yes (Death, Hospitalization)
  Sender: FDA-Public Use
  Company Number: US-SA-2013SA112974

PATIENT
  Age: 60 Year
  Sex: Female

DRUGS (1)
  1. DOCETAXEL [Suspect]
     Indication: BREAST CANCER
     Route: 065

REACTIONS (5)
  - Alveolitis allergic [Fatal]
  - Productive cough [Fatal]
  - White blood cell count increased [Fatal]
  - Respiratory failure [Fatal]
  - Dyspnoea [Fatal]
